FAERS Safety Report 8919975 (Version 1)
Quarter: 2012Q4

REPORT INFORMATION
  Report Type: 
  Country: US (occurrence: US)
  Receive Date: 20121121
  Receipt Date: 20121121
  Transmission Date: 20130627
  Serious: No
  Sender: FDA-Public Use
  Company Number: US-BAYER-2012-121944

PATIENT

DRUGS (12)
  1. ALEVE CAPLET/TABLET,MIDOL EXTENDED RELIEF CAPLET [Suspect]
     Indication: BACK PAIN
  2. ALEVE CAPLET/TABLET,MIDOL EXTENDED RELIEF CAPLET [Suspect]
     Indication: PAIN ANKLE
  3. ALEVE CAPLET/TABLET,MIDOL EXTENDED RELIEF CAPLET [Suspect]
     Indication: PAINFUL FEET
  4. IBUPROFEN [Concomitant]
     Indication: BACK PAIN
  5. IBUPROFEN [Concomitant]
     Indication: PAIN ANKLE
  6. IBUPROFEN [Concomitant]
     Indication: PAINFUL FEET
  7. TYLENOL [Concomitant]
     Indication: BACK PAIN
  8. TYLENOL [Concomitant]
     Indication: PAIN ANKLE
  9. TYLENOL [Concomitant]
     Indication: PAINFUL FEET
  10. ADVIL [Concomitant]
     Indication: BACK PAIN
  11. ADVIL [Concomitant]
     Indication: PAINFUL FEET
  12. ADVIL [Concomitant]
     Indication: PAIN ANKLE

REACTIONS (1)
  - Drug ineffective [None]
